FAERS Safety Report 12443547 (Version 1)
Quarter: 2016Q2

REPORT INFORMATION
  Report Type: Spontaneous
  Country: US (occurrence: US)
  Receive Date: 20160607
  Receipt Date: 20160607
  Transmission Date: 20160815
  Serious: Yes (Other)
  Sender: FDA-Public Use
  Company Number: US-PFIZER INC-2016282023

PATIENT
  Age: 6 Year
  Sex: Male
  Weight: 19 kg

DRUGS (11)
  1. SUCCINYLCHOLINE CHLORIDE. [Suspect]
     Active Substance: SUCCINYLCHOLINE CHLORIDE
     Indication: ANAESTHESIA
     Dosage: 20 MG, UNK
     Route: 042
  2. ENFLURANE. [Suspect]
     Active Substance: ENFLURANE
     Indication: ANAESTHESIA
     Dosage: UNK
  3. ATROPINE. [Concomitant]
     Active Substance: ATROPINE
     Dosage: 0.2 MG, UNK
     Route: 030
  4. NITROUS OXIDE. [Suspect]
     Active Substance: NITROUS OXIDE
     Indication: ANAESTHESIA
     Dosage: UNK
  5. MEPERIDINE [Concomitant]
     Active Substance: MEPERIDINE
     Dosage: 30 MG, UNK
  6. PROMETHAZINE [Concomitant]
     Active Substance: PROMETHAZINE\PROMETHAZINE HYDROCHLORIDE
     Dosage: 5 MG, UNK
  7. DEXTROSE. [Concomitant]
     Active Substance: DEXTROSE
     Dosage: 5 %, UNK
     Route: 042
  8. DEXTROSE. [Concomitant]
     Active Substance: DEXTROSE
     Dosage: 50 %, UNK
  9. KETAMINE [Concomitant]
     Active Substance: KETAMINE
     Dosage: 75 MG, UNK
     Route: 030
  10. DEXTROSE. [Concomitant]
     Active Substance: DEXTROSE
     Dosage: 50 %, UNK
  11. PANCURONIUM [Concomitant]
     Active Substance: PANCURONIUM
     Dosage: 1 MG, UNK
     Route: 042

REACTIONS (2)
  - Ketoacidosis [Recovered/Resolved]
  - Hyperthermia [Unknown]
